FAERS Safety Report 7438242-3 (Version None)
Quarter: 2011Q2

REPORT INFORMATION
  Report Type: 
  Country: None (occurrence: None)
  Receive Date: 20110426
  Receipt Date: 20101208
  Transmission Date: 20111010
  Serious: Yes (Hospitalization, Other)
  Sender: FDA-Public Use
  Company Number: US-BAYER-201018973NA

PATIENT
  Age: 26 Year
  Sex: Female
  Weight: 68.027 kg

DRUGS (2)
  1. ASCORBIC ACID [Concomitant]
  2. YAZ [Suspect]
     Indication: PRODUCT USED FOR UNKNOWN INDICATION
     Route: 048
     Dates: start: 20080201, end: 20090901

REACTIONS (7)
  - ABDOMINAL PAIN [None]
  - WEIGHT DECREASED [None]
  - GALLBLADDER DISORDER [None]
  - CHOLECYSTITIS ACUTE [None]
  - NAUSEA [None]
  - ABDOMINAL TENDERNESS [None]
  - CHOLELITHIASIS [None]
